FAERS Safety Report 10278826 (Version 2)
Quarter: 2014Q3

REPORT INFORMATION
  Report Type: Spontaneous
  Country: US (occurrence: US)
  Receive Date: 20140706
  Receipt Date: 20140706
  Transmission Date: 20150326
  Serious: No
  Sender: FDA-Public Use
  Company Number: US-ASTRAZENECA-2014SE31861

PATIENT
  Age: 666 Month
  Sex: Female
  Weight: 188.7 kg

DRUGS (2)
  1. PROAIR HFA [Concomitant]
     Active Substance: ALBUTEROL SULFATE
     Route: 055
  2. SYMBICORT [Suspect]
     Active Substance: BUDESONIDE\FORMOTEROL FUMARATE DIHYDRATE
     Indication: ASTHMA
     Dosage: 160/4.5MCG, UNKNOWN DOSE OR FREQUENCY
     Route: 055
     Dates: start: 20140422

REACTIONS (7)
  - Feeling abnormal [Recovered/Resolved]
  - Malaise [Recovered/Resolved]
  - Tachycardia [Recovering/Resolving]
  - Oropharyngeal spasm [Recovering/Resolving]
  - Palpitations [Recovered/Resolved]
  - Breast pain [Recovered/Resolved]
  - Nervousness [Recovering/Resolving]

NARRATIVE: CASE EVENT DATE: 201404
